FAERS Safety Report 6469758-4 (Version None)
Quarter: 2009Q4

REPORT INFORMATION
  Report Type: 
  Country: None (occurrence: None)
  Receive Date: 20091203
  Receipt Date: 20090527
  Transmission Date: 20100525
  Serious: Yes (Hospitalization)
  Sender: FDA-Public Use
  Company Number: JP-ELI_LILLY_AND_COMPANY-JP200705003650

PATIENT
  Sex: Female
  Weight: 2.72 kg

DRUGS (10)
  1. ZYPREXA [Suspect]
     Dosage: UNK, DAILY (1/D)
     Route: 064
     Dates: start: 20060801, end: 20070509
  2. BICAMOL [Concomitant]
     Dosage: UNK, DAILY (1/D)
     Route: 064
     Dates: start: 20060801, end: 20070509
  3. CONSTAN [Concomitant]
     Dosage: UNK, AS NEEDED
     Route: 064
     Dates: start: 20060801
  4. CERCINE [Concomitant]
     Dosage: UNK, AS NEEDED
     Route: 064
     Dates: start: 20060801
  5. GASTER [Concomitant]
     Route: 064
  6. CABAGIN /00522301/ [Concomitant]
     Route: 064
  7. MARCAINE [Concomitant]
     Route: 064
     Dates: start: 20070509, end: 20070509
  8. FENTANYL [Concomitant]
     Route: 064
     Dates: start: 20070509, end: 20070509
  9. ECOLICIN [Concomitant]
     Indication: PROPHYLAXIS
     Route: 047
     Dates: start: 20070509, end: 20070509
  10. KAYTWO N [Concomitant]
     Indication: PROPHYLAXIS
     Dosage: 2 MG, DAILY (1/D)
     Route: 042
     Dates: start: 20070510, end: 20070510

REACTIONS (10)
  - AGITATION NEONATAL [None]
  - ARRHYTHMIA NEONATAL [None]
  - BRADYCARDIA NEONATAL [None]
  - DEHYDRATION [None]
  - DRUG EXPOSURE DURING PREGNANCY [None]
  - FEEDING DISORDER NEONATAL [None]
  - NEONATAL HYPONATRAEMIA [None]
  - RESPIRATORY DISORDER NEONATAL [None]
  - SOMNOLENCE NEONATAL [None]
  - VOMITING NEONATAL [None]
